FAERS Safety Report 8392002-8 (Version None)
Quarter: 2012Q2

REPORT INFORMATION
  Report Type: 
  Country: None (occurrence: None)
  Receive Date: 20120529
  Receipt Date: 20120517
  Transmission Date: 20120825
  Serious: Yes (Hospitalization)
  Sender: FDA-Public Use
  Company Number: US-ASTRAZENECA-2010SE57777

PATIENT
  Age: 60 Year
  Sex: Male
  Weight: 90.7 kg

DRUGS (50)
  1. SEROQUEL [Suspect]
     Route: 048
     Dates: start: 20100423
  2. SEROQUEL [Suspect]
     Route: 048
     Dates: start: 20100401
  3. SEROQUEL [Suspect]
     Route: 048
  4. CALCIUM [Concomitant]
  5. LORAZEPAM [Concomitant]
  6. SEROQUEL [Suspect]
     Indication: BIPOLAR DISORDER
     Route: 048
     Dates: start: 20100208
  7. SEROQUEL [Suspect]
     Route: 048
     Dates: start: 20100423
  8. SEROQUEL [Suspect]
     Route: 048
  9. LISINOPRIL [Concomitant]
     Route: 048
  10. LEVOTHYROXINE SODIUM [Concomitant]
  11. WELLBUTRIN XL [Concomitant]
  12. EYE DROPS [Concomitant]
  13. CENTRUM ULTRUM [Concomitant]
  14. SEROQUEL [Suspect]
     Indication: SLEEP DISORDER
     Route: 048
     Dates: start: 20100208
  15. SEROQUEL [Suspect]
     Route: 048
     Dates: start: 20100423
  16. TOPAMAX [Concomitant]
     Indication: BIPOLAR DISORDER
     Dosage: TWICE A DAY
  17. GLICLAZIDE [Concomitant]
  18. DEPAKOTE [Concomitant]
  19. SEROQUEL [Suspect]
     Route: 048
     Dates: start: 20100208
  20. SEROQUEL [Suspect]
     Route: 048
     Dates: start: 20100423
  21. FISH OIL [Concomitant]
  22. GLIPIZIDE [Concomitant]
     Dosage: 2, 5 MG BID
  23. LUMIGAN [Concomitant]
     Dosage: OU, ONE DROP
  24. NEXIUM [Suspect]
     Route: 048
  25. SEROQUEL [Suspect]
     Route: 048
     Dates: start: 20100423
  26. SEROQUEL [Suspect]
     Route: 048
     Dates: start: 20100423
  27. SEROQUEL [Suspect]
     Dosage: TAKING 300 MG ONE AND 400 MG ONE AT NIGHT
     Route: 048
  28. SEROQUEL [Suspect]
     Route: 048
  29. SEROQUEL [Suspect]
     Route: 048
  30. SIMVASTATIN [Concomitant]
  31. NEXIUM [Suspect]
     Indication: GASTROOESOPHAGEAL REFLUX DISEASE
     Route: 048
  32. SEROQUEL [Suspect]
     Route: 048
     Dates: start: 20100423
  33. SEROQUEL [Suspect]
     Route: 048
     Dates: start: 20100401
  34. LORAZEPAM [Concomitant]
     Indication: BIPOLAR DISORDER
  35. JANUVIA [Concomitant]
  36. SEROQUEL [Suspect]
     Indication: DEPRESSION
     Route: 048
     Dates: start: 20100208
  37. SEROQUEL [Suspect]
     Route: 048
     Dates: start: 20100423
  38. SEROQUEL [Suspect]
     Dosage: TAKING 300 MG ONE AND 400 MG ONE AT NIGHT
     Route: 048
  39. SEROQUEL [Suspect]
     Dosage: TAKING 300 MG ONE AND 400 MG ONE AT NIGHT
     Route: 048
  40. SEROQUEL [Suspect]
     Route: 048
     Dates: start: 20100401
  41. GLIPIZIDE [Concomitant]
  42. LEVOTHYROXINE SODIUM [Concomitant]
  43. IONPILL FERROUS SULFATE [Concomitant]
  44. ATIVAN [Concomitant]
  45. BUTRIN [Concomitant]
  46. SEROQUEL [Suspect]
     Dosage: TAKING 300 MG ONE AND 400 MG ONE AT NIGHT
     Route: 048
  47. SEROQUEL [Suspect]
     Route: 048
     Dates: start: 20100401
  48. VIT C [Concomitant]
  49. TOPAMAX [Concomitant]
  50. IRON PILLS [Concomitant]

REACTIONS (28)
  - DYSPNOEA [None]
  - FAECAL INCONTINENCE [None]
  - SOMNOLENCE [None]
  - GAIT DISTURBANCE [None]
  - FATIGUE [None]
  - IMPAIRED SELF-CARE [None]
  - POLLAKIURIA [None]
  - OFF LABEL USE [None]
  - DYSPNOEA EXERTIONAL [None]
  - RHINORRHOEA [None]
  - WEIGHT INCREASED [None]
  - PAIN IN EXTREMITY [None]
  - PSYCHOMOTOR HYPERACTIVITY [None]
  - BLOOD GLUCOSE FLUCTUATION [None]
  - ERUCTATION [None]
  - HEADACHE [None]
  - DIET REFUSAL [None]
  - DYSPHAGIA [None]
  - WEIGHT FLUCTUATION [None]
  - INAPPROPRIATE AFFECT [None]
  - ANAEMIA [None]
  - BLOOD GLUCOSE INCREASED [None]
  - DIABETES MELLITUS [None]
  - CONSTIPATION [None]
  - INSOMNIA [None]
  - PRURITUS [None]
  - CHEILITIS [None]
  - NERVOUSNESS [None]
